APPROVED DRUG PRODUCT: METHYLPHENIDATE HYDROCHLORIDE
Active Ingredient: METHYLPHENIDATE HYDROCHLORIDE
Strength: 20MG
Dosage Form/Route: TABLET;ORAL
Application: A090710 | Product #003 | TE Code: AB
Applicant: SUN PHARMACEUTICAL INDUSTRIES INC
Approved: Mar 15, 2012 | RLD: No | RS: No | Type: RX